FAERS Safety Report 5931417-1 (Version None)
Quarter: 2008Q4

REPORT INFORMATION
  Report Type: 
  Country: None (occurrence: None)
  Receive Date: 20081023
  Receipt Date: 20060613
  Transmission Date: 20090506
  Serious: Yes (Hospitalization, Other)
  Sender: FDA-Public Use
  Company Number: 2006AL002169

PATIENT
  Age: 75 Year
  Sex: Male

DRUGS (5)
  1. DICLOFENAC SODIUM [Suspect]
     Indication: HERPES ZOSTER
     Dosage: PO
     Route: 048
  2. ATACAND [Concomitant]
  3. ALVEDON [Concomitant]
  4. WARFARIN SODIUM [Concomitant]
  5. ATENOLOL [Concomitant]

REACTIONS (5)
  - DIZZINESS [None]
  - MUSCULAR WEAKNESS [None]
  - OFF LABEL USE [None]
  - PANCYTOPENIA [None]
  - PYREXIA [None]
